FAERS Safety Report 6339541 (Version 2)
Quarter: 2013Q2

REPORT INFORMATION
  Report Type: Spontaneous
  Country: US (occurrence: US)
  Receive Date: 20070622
  Receipt Date: 20130425
  Transmission Date: 20140414
  Serious: No
  Sender: FDA-Public Use
  Company Number: US-ASTRAZENECA-2006UW09108

PATIENT
  Age: 66 Year
  Sex: Male
  Weight: 108.9 kg

DRUGS (3)
  1. RHINOCORT AQUA [Suspect]
     Indication: SINUSITIS
     Route: 045
  2. RHINOCORT AQUA [Suspect]
     Indication: SINUSITIS
     Route: 045
  3. BLOOD PRESSURE MEDICATION [Concomitant]

REACTIONS (2)
  - Nipple pain [Unknown]
  - Intentional drug misuse [Unknown]
